FAERS Safety Report 6193251-X (Version None)
Quarter: 2009Q2

REPORT INFORMATION
  Report Type: 
  Country: None (occurrence: None)
  Receive Date: 20090518
  Receipt Date: 20090508
  Transmission Date: 20091009
  Serious: Yes (Hospitalization)
  Sender: FDA-Public Use
  Company Number: A0784455A

PATIENT
  Age: 64 Year
  Sex: Female
  Weight: 102.7 kg

DRUGS (4)
  1. AVANDIA [Suspect]
     Route: 048
  2. REGULAR INSULIN [Concomitant]
     Dates: start: 20020901, end: 20060401
  3. LANTUS [Concomitant]
     Dates: start: 20060401
  4. AMARYL [Concomitant]
     Dates: start: 20030201

REACTIONS (4)
  - ANEURYSM [None]
  - CORONARY ARTERY DISEASE [None]
  - MYOCARDIAL INFARCTION [None]
  - QUALITY OF LIFE DECREASED [None]
